FAERS Safety Report 8422389-9 (Version None)
Quarter: 2012Q2

REPORT INFORMATION
  Report Type: 
  Country: None (occurrence: None)
  Receive Date: 20120608
  Receipt Date: 20120529
  Transmission Date: 20120825
  Serious: Yes (Other)
  Sender: FDA-Public Use
  Company Number: IT-EISAI INC-E3810-05597-SPO-IT

PATIENT
  Age: 41 Year
  Sex: Male

DRUGS (3)
  1. KETOPROFEN [Suspect]
     Indication: MULTIPLE DRUG OVERDOSE INTENTIONAL
     Route: 048
     Dates: start: 20120529, end: 20120529
  2. RABEPRAZOLE SODIUM [Suspect]
     Route: 048
     Dates: start: 20120529, end: 20120529
  3. AULIN [Suspect]
     Indication: MULTIPLE DRUG OVERDOSE INTENTIONAL
     Route: 048
     Dates: start: 20120529, end: 20120529

REACTIONS (3)
  - SELF INJURIOUS BEHAVIOUR [None]
  - MULTIPLE DRUG OVERDOSE INTENTIONAL [None]
  - DYSPEPSIA [None]
